FAERS Safety Report 9657468 (Version 1)
Quarter: 2013Q4

REPORT INFORMATION
  Report Type: Spontaneous
  Country: US (occurrence: US)
  Receive Date: 20131030
  Receipt Date: 20131030
  Transmission Date: 20140711
  Serious: No
  Sender: FDA-Public Use
  Company Number: US-PURDUE-USA-2011-0078720

PATIENT
  Age: 24 Year
  Sex: Male
  Weight: 90.7 kg

DRUGS (3)
  1. OXYCODONE HYDROCHLORIDE (SIMILAR TO NDA 20-553) [Suspect]
     Indication: BACK PAIN
  2. LEXAPRO [Concomitant]
     Indication: POST-TRAUMATIC STRESS DISORDER
     Dosage: UNK, BID
     Route: 048
  3. VALPROIC ACID [Concomitant]
     Indication: POST-TRAUMATIC STRESS DISORDER
     Dosage: 20 MG, DAILY
     Route: 048

REACTIONS (1)
  - Drug clearance increased [Unknown]
